FAERS Safety Report 9459785 (Version 2)
Quarter: 2013Q3

REPORT INFORMATION
  Report Type: Spontaneous
  Country: US (occurrence: US)
  Receive Date: 20130815
  Receipt Date: 20130910
  Transmission Date: 20140515
  Serious: No
  Sender: FDA-Public Use
  Company Number: US-PFIZER INC-2013234585

PATIENT
  Age: 75 Year
  Sex: Male
  Weight: 90.7 kg

DRUGS (4)
  1. AMLODIPINE BESILATE [Suspect]
     Indication: HYPERTENSION
     Dosage: 5 MG, DAILY
     Dates: start: 2013
  2. LUMIGAN [Concomitant]
     Indication: GLAUCOMA
     Dosage: UNK
  3. CARTEOLOL [Concomitant]
     Indication: GLAUCOMA
     Dosage: UNK
  4. ALLOPURINOL [Concomitant]
     Dosage: 100 MG, DAILY

REACTIONS (3)
  - Oedema peripheral [Not Recovered/Not Resolved]
  - Musculoskeletal stiffness [Not Recovered/Not Resolved]
  - Joint stiffness [Not Recovered/Not Resolved]
